FAERS Safety Report 4892553-4 (Version None)
Quarter: 2006Q1

REPORT INFORMATION
  Report Type: 
  Country: None (occurrence: None)
  Receive Date: 20060126
  Receipt Date: 20051101
  Transmission Date: 20060701
  Serious: Yes (Hospitalization, Other)
  Sender: FDA-Public Use
  Company Number: PHEH2005US12212

PATIENT
  Sex: Female

DRUGS (3)
  1. ZOMETA [Suspect]
     Indication: MULTIPLE MYELOMA
     Dosage: UNSPECIFIED
     Dates: end: 20051101
  2. ALKERAN [Concomitant]
  3. PREDNISONE [Concomitant]

REACTIONS (10)
  - ABSCESS JAW [None]
  - BONE DISORDER [None]
  - BONE FORMATION INCREASED [None]
  - CEREBROVASCULAR ACCIDENT [None]
  - DEFORMITY [None]
  - HYPOAESTHESIA [None]
  - OEDEMA [None]
  - OSTEOPETROSIS [None]
  - PAIN [None]
  - TOOTH EXTRACTION [None]
